FAERS Safety Report 4480544-7 (Version None)
Quarter: 2004Q4

REPORT INFORMATION
  Report Type: 
  Country: None (occurrence: None)
  Receive Date: 20041019
  Receipt Date: 20041012
  Transmission Date: 20050328
  Serious: Yes (Death, Hospitalization)
  Sender: FDA-Public Use
  Company Number: 2004AP05299

PATIENT
  Age: 73 Year
  Sex: Female

DRUGS (1)
  1. IRESSA [Suspect]
     Indication: LUNG ADENOCARCINOMA
     Dosage: 250 MG DAILY PO
     Route: 048
     Dates: start: 20040119, end: 20041001

REACTIONS (9)
  - ACNE [None]
  - ASTHENIA [None]
  - DEPRESSED LEVEL OF CONSCIOUSNESS [None]
  - DISEASE PROGRESSION [None]
  - DRY SKIN [None]
  - DYSPHAGIA [None]
  - HOARSENESS [None]
  - PRURITUS [None]
  - STOMACH DISCOMFORT [None]
